FAERS Safety Report 6810639-1 (Version None)
Quarter: 2010Q2

REPORT INFORMATION
  Report Type: 
  Country: None (occurrence: None)
  Receive Date: 20100629
  Receipt Date: 20100629
  Transmission Date: 20101027
  Serious: No
  Sender: FDA-Public Use
  Company Number: None

PATIENT
  Age: 44 Year
  Sex: Female
  Weight: 86.1834 kg

DRUGS (3)
  1. DEXTROAMP-AMPHET ER 20 MG CAP 20 MG TEVA USA [Suspect]
     Indication: ATTENTION DEFICIT/HYPERACTIVITY DISORDER
     Dosage: 20 MG EACH MORNING PO
     Route: 048
     Dates: start: 20100618, end: 20100628
  2. LEXAPRO [Concomitant]
  3. FEXOFENADINE HCL [Concomitant]

REACTIONS (3)
  - FATIGUE [None]
  - PRODUCT SUBSTITUTION ISSUE [None]
  - TREATMENT NONCOMPLIANCE [None]
